FAERS Safety Report 5804020-1 (Version None)
Quarter: 2008Q3

REPORT INFORMATION
  Report Type: 
  Country: None (occurrence: None)
  Receive Date: 20080703
  Receipt Date: 20080623
  Transmission Date: 20090109
  Serious: Yes (Hospitalization)
  Sender: FDA-Public Use
  Company Number: 237513K07USA

PATIENT
  Age: 59 Year
  Sex: Male
  Weight: 173 kg

DRUGS (1)
  1. REBIF [Suspect]
     Indication: MULTIPLE SCLEROSIS
     Dosage: 44 MCG, 3 IN 1 WEEKS, SUBCUTANEOUS
     Route: 058
     Dates: start: 20070307, end: 20070701

REACTIONS (2)
  - IMMUNE SYSTEM DISORDER [None]
  - URINARY TRACT INFECTION [None]
